FAERS Safety Report 13371638 (Version 3)
Quarter: 2017Q2

REPORT INFORMATION
  Report Type: Spontaneous
  Country: CH (occurrence: CH)
  Receive Date: 20170325
  Receipt Date: 20170410
  Transmission Date: 20170830
  Serious: Yes (Other)
  Sender: FDA-Public Use
  Company Number: CH-AMGEN-CHESP2017045356

PATIENT
  Age: 65 Year
  Sex: Male
  Weight: 82 kg

DRUGS (4)
  1. LEFLUNOMID [Concomitant]
     Active Substance: LEFLUNOMIDE
     Indication: PSORIASIS
  2. ECOFENAC [Concomitant]
     Active Substance: DICLOFENAC SODIUM
     Indication: PSORIATIC ARTHROPATHY
     Dosage: 75 UP TO 150 MG PER DAY
     Route: 048
  3. ENBREL [Suspect]
     Active Substance: ETANERCEPT
     Indication: PSORIATIC ARTHROPATHY
     Dosage: 50 MG, /2 WEEKS
     Route: 058
     Dates: start: 20110501, end: 20170314
  4. LEFLUNOMID [Concomitant]
     Active Substance: LEFLUNOMIDE
     Indication: PSORIATIC ARTHROPATHY
     Dosage: 10 MG, DAILY
     Route: 048
     Dates: start: 20010719

REACTIONS (2)
  - Granuloma [Unknown]
  - Deposit eye [Unknown]
